FAERS Safety Report 8387263-5 (Version None)
Quarter: 2012Q2

REPORT INFORMATION
  Report Type: 
  Country: None (occurrence: None)
  Receive Date: 20120525
  Receipt Date: 20120521
  Transmission Date: 20120825
  Serious: Yes (Other)
  Sender: FDA-Public Use
  Company Number: MY-ROXANE LABORATORIES, INC.-2012-RO-01283RO

PATIENT
  Age: 58 Year
  Sex: Female

DRUGS (9)
  1. METHOTREXATE [Suspect]
     Indication: ARTHRITIS ENTEROPATHIC
     Dosage: 10 MG
     Route: 048
  2. AZATHIOPRINE [Suspect]
     Indication: ARTHRITIS ENTEROPATHIC
     Dosage: 150 MG
  3. PREDNISOLONE [Suspect]
     Indication: ARTHRITIS ENTEROPATHIC
     Route: 048
  4. MESALAMINE [Suspect]
     Indication: ARTHRITIS ENTEROPATHIC
     Dosage: 3 G
  5. ETANERCEPT [Suspect]
     Indication: ARTHRITIS ENTEROPATHIC
     Route: 058
  6. AZATHIOPRINE [Suspect]
     Indication: COLITIS
     Dosage: 100 MG
  7. METHYLPREDNISOLONE [Suspect]
     Indication: ARTHRITIS ENTEROPATHIC
     Dosage: 500 MG
     Route: 042
  8. SULFASALAZINE [Suspect]
     Indication: ARTHRITIS ENTEROPATHIC
     Dosage: 2 G
  9. PREDNISOLONE [Suspect]
     Dosage: 10 MG
     Route: 048

REACTIONS (6)
  - LEUKOPENIA [None]
  - IATROGENIC INJURY [None]
  - INFLAMMATORY MARKER INCREASED [None]
  - JOINT EFFUSION [None]
  - COLITIS [None]
  - PNEUMONIA [None]
